FAERS Safety Report 25532250 (Version 1)
Quarter: 2025Q3

REPORT INFORMATION
  Report Type: Spontaneous
  Country: US (occurrence: US)
  Receive Date: 20250709
  Receipt Date: 20250709
  Transmission Date: 20251020
  Serious: Yes (Other)
  Sender: COOPERSURGICAL
  Company Number: US-COOPERSURGICAL, INC.-2025CPS005252

PATIENT
  Age: 37 Year
  Sex: Female
  Weight: 81.633 kg

DRUGS (6)
  1. PARAGARD T 380A [Suspect]
     Active Substance: COPPER
     Indication: Contraception
     Route: 015
     Dates: start: 20100101, end: 20210805
  2. LISINOPRIL [Concomitant]
     Active Substance: LISINOPRIL
     Dates: start: 201908, end: 202203
  3. IBUPROFEN [Concomitant]
     Active Substance: IBUPROFEN
     Dates: start: 201908
  4. ALEVE [Concomitant]
     Active Substance: NAPROXEN SODIUM
     Dates: start: 201908
  5. GABAPENTIN [Concomitant]
     Active Substance: GABAPENTIN
     Dates: start: 201908
  6. UNSPECIFIED INGREDIENT [Concomitant]
     Active Substance: UNSPECIFIED INGREDIENT
     Dates: start: 202008

REACTIONS (12)
  - Reproductive complication associated with device [Unknown]
  - Uterine injury [Not Recovered/Not Resolved]
  - Device breakage [Recovered/Resolved]
  - Foreign body in reproductive tract [Recovered/Resolved]
  - Complication of device removal [Recovered/Resolved]
  - Fear [Unknown]
  - Emotional distress [Unknown]
  - Psychological trauma [Not Recovered/Not Resolved]
  - Pelvic pain [Not Recovered/Not Resolved]
  - Abnormal uterine bleeding [Not Recovered/Not Resolved]
  - Intentional device use issue [Recovered/Resolved]
  - Off label use [Unknown]

NARRATIVE: CASE EVENT DATE: 20200102
